FAERS Safety Report 25159291 (Version 3)
Quarter: 2025Q3

REPORT INFORMATION
  Report Type: Spontaneous
  Country: JP (occurrence: JP)
  Receive Date: 20250404
  Receipt Date: 20250802
  Transmission Date: 20251020
  Serious: Yes (Death)
  Sender: ALEXION PHARMACEUTICALS
  Company Number: JP-ASTRAZENECA-250031706_013120_P_1

PATIENT
  Age: 7 Decade
  Sex: Male
  Weight: 77 kg

DRUGS (30)
  1. DURVALUMAB [Suspect]
     Active Substance: DURVALUMAB
     Indication: Hepatocellular carcinoma
  2. DURVALUMAB [Suspect]
     Active Substance: DURVALUMAB
  3. TREMELIMUMAB [Suspect]
     Active Substance: TREMELIMUMAB
     Indication: Hepatocellular carcinoma
  4. TREMELIMUMAB [Suspect]
     Active Substance: TREMELIMUMAB
  5. CILNIDIPINE [Concomitant]
     Active Substance: CILNIDIPINE
  6. CILNIDIPINE [Concomitant]
     Active Substance: CILNIDIPINE
  7. CARVEDILOL [Concomitant]
     Active Substance: CARVEDILOL
  8. CARVEDILOL [Concomitant]
     Active Substance: CARVEDILOL
  9. FEBUXOSTAT [Concomitant]
     Active Substance: FEBUXOSTAT
  10. FEBUXOSTAT [Concomitant]
     Active Substance: FEBUXOSTAT
  11. TRICHLORMETHIAZIDE [Concomitant]
     Active Substance: TRICHLORMETHIAZIDE
  12. TRICHLORMETHIAZIDE [Concomitant]
     Active Substance: TRICHLORMETHIAZIDE
  13. RABEPRAZOLE SODIUM [Concomitant]
     Active Substance: RABEPRAZOLE SODIUM
  14. RABEPRAZOLE SODIUM [Concomitant]
     Active Substance: RABEPRAZOLE SODIUM
  15. URSODIOL [Concomitant]
     Active Substance: URSODIOL
  16. URSODIOL [Concomitant]
     Active Substance: URSODIOL
  17. FEXOFENADINE HYDROCHLORIDE [Concomitant]
     Active Substance: FEXOFENADINE HYDROCHLORIDE
  18. FEXOFENADINE HYDROCHLORIDE [Concomitant]
     Active Substance: FEXOFENADINE HYDROCHLORIDE
  19. CARBOCYSTEINE [Concomitant]
     Active Substance: CARBOCYSTEINE
  20. CARBOCYSTEINE [Concomitant]
     Active Substance: CARBOCYSTEINE
  21. DIMEMORFAN PHOSPHATE [Concomitant]
     Active Substance: DIMEMORFAN PHOSPHATE
  22. DIMEMORFAN PHOSPHATE [Concomitant]
     Active Substance: DIMEMORFAN PHOSPHATE
  23. HYDROMORPHONE HYDROCHLORIDE [Concomitant]
     Active Substance: HYDROMORPHONE HYDROCHLORIDE
     Route: 065
  24. HYDROMORPHONE HYDROCHLORIDE [Concomitant]
     Active Substance: HYDROMORPHONE HYDROCHLORIDE
     Route: 065
  25. HYDROMORPHONE HYDROCHLORIDE [Concomitant]
     Active Substance: HYDROMORPHONE HYDROCHLORIDE
     Dosage: 2 MILLIGRAM
     Route: 065
  26. HYDROMORPHONE HYDROCHLORIDE [Concomitant]
     Active Substance: HYDROMORPHONE HYDROCHLORIDE
     Dosage: 2 MILLIGRAM
     Route: 065
  27. LENVATINIB MESYLATE [Concomitant]
     Active Substance: LENVATINIB MESYLATE
     Route: 065
  28. LENVATINIB MESYLATE [Concomitant]
     Active Substance: LENVATINIB MESYLATE
     Route: 065
  29. ATEZOLIZUMAB [Concomitant]
     Active Substance: ATEZOLIZUMAB
     Route: 065
  30. BEVACIZUMAB [Concomitant]
     Active Substance: BEVACIZUMAB
     Route: 065

REACTIONS (1)
  - Malignant neoplasm progression [Fatal]
